FAERS Safety Report 7990342-5 (Version None)
Quarter: 2011Q4

REPORT INFORMATION
  Report Type: 
  Country: None (occurrence: None)
  Receive Date: 20111219
  Receipt Date: 20110721
  Transmission Date: 20120403
  Serious: No
  Sender: FDA-Public Use
  Company Number: US-ASTRAZENECA-2011SE43445

PATIENT
  Age: 50 Year
  Sex: Female
  Weight: 69.4 kg

DRUGS (3)
  1. METFORMIN HCL [Concomitant]
  2. LISINOPRIL [Concomitant]
  3. CRESTOR [Suspect]
     Route: 048

REACTIONS (2)
  - DRUG DOSE OMISSION [None]
  - BLOOD CHOLESTEROL INCREASED [None]
